FAERS Safety Report 4710473-2 (Version None)
Quarter: 2005Q3

REPORT INFORMATION
  Report Type: 
  Country: None (occurrence: None)
  Receive Date: 20050711
  Receipt Date: 20050628
  Transmission Date: 20060218
  Serious: Yes (Other)
  Sender: FDA-Public Use
  Company Number: DE-JNJFOC-20050607216

PATIENT
  Sex: Female
  Weight: 29 kg

DRUGS (2)
  1. TOPAMAX [Suspect]
     Route: 049
  2. LAMICTAL [Suspect]
     Route: 065

REACTIONS (7)
  - BLOOD CREATINE PHOSPHOKINASE INCREASED [None]
  - BODY TEMPERATURE INCREASED [None]
  - DEHYDRATION [None]
  - HYPEROSMOLAR STATE [None]
  - HYPOKALAEMIA [None]
  - INFECTION [None]
  - MYOSITIS [None]
